FAERS Safety Report 5801048-2 (Version None)
Quarter: 2008Q3

REPORT INFORMATION
  Report Type: 
  Country: None (occurrence: None)
  Receive Date: 20080704
  Receipt Date: 20080626
  Transmission Date: 20090109
  Serious: Yes (Death, Hospitalization)
  Sender: FDA-Public Use
  Company Number: TR-ELI_LILLY_AND_COMPANY-TR200806005888

PATIENT
  Sex: Male

DRUGS (2)
  1. HUMALOG [Suspect]
     Indication: DIABETES MELLITUS
     Dosage: UNK UNK, AS NEEDED
     Route: 058
  2. LANTUS [Concomitant]
     Indication: DIABETES MELLITUS
     Dosage: UNK UNK, AS NEEDED
     Route: 058
     Dates: start: 20080422

REACTIONS (2)
  - HOSPITALISATION [None]
  - MYOCARDIAL INFARCTION [None]
